FAERS Safety Report 8418884-9 (Version None)
Quarter: 2012Q2

REPORT INFORMATION
  Report Type: 
  Country: None (occurrence: None)
  Receive Date: 20120531
  Receipt Date: 20120529
  Transmission Date: 20120825
  Serious: Yes (Other)
  Sender: FDA-Public Use
  Company Number: ZYD-12-AE-125

PATIENT
  Sex: Male

DRUGS (1)
  1. PLAQUENIL [Suspect]
     Dates: start: 20120501

REACTIONS (1)
  - MENINGITIS ASEPTIC [None]
